FAERS Safety Report 10947746 (Version 2)
Quarter: 2015Q2

REPORT INFORMATION
  Report Type: Spontaneous
  Country: BR (occurrence: BR)
  Receive Date: 20150324
  Receipt Date: 20150416
  Transmission Date: 20150821
  Serious: Yes (Other)
  Sender: FDA-Public Use
  Company Number: BR-ROCHE-1554663

PATIENT
  Age: 30 Year
  Sex: Female
  Weight: 58 kg

DRUGS (9)
  1. RIVOTRIL [Suspect]
     Active Substance: CLONAZEPAM
     Indication: MANIA
     Route: 048
     Dates: start: 2014, end: 2014
  2. RIVOTRIL [Suspect]
     Active Substance: CLONAZEPAM
     Indication: BIPOLAR DISORDER
  3. GEODON [Suspect]
     Active Substance: ZIPRASIDONE HYDROCHLORIDE\ZIPRASIDONE MESYLATE
     Indication: HALLUCINATION
  4. RIVOTRIL [Suspect]
     Active Substance: CLONAZEPAM
     Indication: DEPRESSION
  5. GEODON [Suspect]
     Active Substance: ZIPRASIDONE HYDROCHLORIDE\ZIPRASIDONE MESYLATE
     Indication: DEPRESSION
  6. RIVOTRIL [Suspect]
     Active Substance: CLONAZEPAM
     Indication: HALLUCINATION
  7. CARBOLITIUM CR [Concomitant]
     Dosage: ONE TABLET IN THE MORNING AND ONE AT NIGHT, 450 MG
     Route: 065
     Dates: start: 201409, end: 201410
  8. GEODON [Suspect]
     Active Substance: ZIPRASIDONE HYDROCHLORIDE\ZIPRASIDONE MESYLATE
     Indication: MANIA
     Route: 048
     Dates: start: 2014, end: 2014
  9. GEODON [Suspect]
     Active Substance: ZIPRASIDONE HYDROCHLORIDE\ZIPRASIDONE MESYLATE
     Indication: BIPOLAR DISORDER
     Route: 048
     Dates: start: 201502

REACTIONS (2)
  - Unevaluable event [Unknown]
  - Somnolence [Unknown]

NARRATIVE: CASE EVENT DATE: 201502
